FAERS Safety Report 21633211 (Version 1)
Quarter: 2022Q4

REPORT INFORMATION
  Report Type: Spontaneous
  Country: HU (occurrence: HU)
  Receive Date: 20221123
  Receipt Date: 20221123
  Transmission Date: 20230112
  Serious: Yes (Death, Other)
  Sender: FDA-Public Use
  Company Number: HU-VERTEX PHARMACEUTICALS-2022-017322

PATIENT

DRUGS (1)
  1. ORKAMBI [Suspect]
     Active Substance: IVACAFTOR\LUMACAFTOR
     Indication: Cystic fibrosis
     Dosage: 100MG LUMACAFTOR/125MG IVACAFTOR
     Route: 048
     Dates: start: 202104

REACTIONS (2)
  - Cardiovascular insufficiency [Fatal]
  - Respiratory failure [Fatal]
